FAERS Safety Report 18048761 (Version 1)
Quarter: 2020Q3

REPORT INFORMATION
  Report Type: Spontaneous
  Country: US (occurrence: US)
  Receive Date: 20200721
  Receipt Date: 20200721
  Transmission Date: 20201103
  Serious: Yes (Other)
  Sender: FDA-Public Use
  Company Number: US-BAYER-2020-139887

PATIENT
  Age: 48 Year
  Sex: Female

DRUGS (5)
  1. SORAFENIB (RAF KINASE INHIBITOR) [Suspect]
     Active Substance: SORAFENIB
     Indication: VASCULAR NEOPLASM
     Dosage: 800 MG, QD
  2. SORAFENIB (RAF KINASE INHIBITOR) [Suspect]
     Active Substance: SORAFENIB
     Indication: VASCULAR NEOPLASM
     Dosage: 400 MG, BID
  3. SORAFENIB (RAF KINASE INHIBITOR) [Suspect]
     Active Substance: SORAFENIB
     Indication: VASCULAR NEOPLASM
     Dosage: 600 MG, QD
  4. SORAFENIB (RAF KINASE INHIBITOR) [Suspect]
     Active Substance: SORAFENIB
     Indication: VASCULAR NEOPLASM
     Dosage: 200 MG, QD
  5. SORAFENIB (RAF KINASE INHIBITOR) [Suspect]
     Active Substance: SORAFENIB
     Indication: VASCULAR NEOPLASM
     Dosage: 400 MG, QD

REACTIONS (11)
  - Hepatic lesion [None]
  - Pulmonary mass [None]
  - Lung infiltration [None]
  - Off label use [None]
  - Pulmonary mass [None]
  - Product use in unapproved indication [None]
  - Toxicity to various agents [None]
  - Unintentional use for unapproved indication [None]
  - Pulmonary mass [None]
  - Palmar-plantar erythrodysaesthesia syndrome [None]
  - Pulmonary mass [None]

NARRATIVE: CASE EVENT DATE: 200812
